FAERS Safety Report 8214413-3 (Version None)
Quarter: 2012Q1

REPORT INFORMATION
  Report Type: 
  Country: None (occurrence: None)
  Receive Date: 20120316
  Receipt Date: 20120308
  Transmission Date: 20120608
  Serious: Yes (Other)
  Sender: FDA-Public Use
  Company Number: US-US-EMD SERONO, INC.-7118535

PATIENT
  Sex: Female

DRUGS (1)
  1. SAIZEN [Suspect]
     Indication: DWARFISM
     Dates: start: 20110902

REACTIONS (2)
  - INJECTION SITE HAEMATOMA [None]
  - MESENTERIC LYMPHADENOPATHY [None]
